FAERS Safety Report 26173172 (Version 1)
Quarter: 2025Q4

REPORT INFORMATION
  Report Type: Report from Study
  Country: US (occurrence: US)
  Receive Date: 20251218
  Receipt Date: 20251218
  Transmission Date: 20260118
  Serious: Yes (Hospitalization)
  Sender: AMNEAL
  Company Number: US-AMNEAL PHARMACEUTICALS-2025-AMRX-04840

PATIENT
  Age: 69 Year
  Sex: Female

DRUGS (6)
  1. CARBIDOPA\LEVODOPA [Suspect]
     Active Substance: CARBIDOPA\LEVODOPA
     Indication: Product used for unknown indication
     Dosage: (36.25-145 MG) 2 CAPSULES THREE TIMES DAILY AT 9AM, 1PM, AND 5PM
     Route: 048
  2. CARBIDOPA\LEVODOPA [Suspect]
     Active Substance: CARBIDOPA\LEVODOPA
     Dosage: (36.25-145 MG) TAKE 2 CAPSULES BY MOUTH FOUR TIMES A DAY AT 5AM, 9AM, 1PM, AND 5PM
     Route: 048
     Dates: start: 20240821
  3. CARBIDOPA\LEVODOPA [Suspect]
     Active Substance: CARBIDOPA\LEVODOPA
     Dosage: (36.25-145 MG) TAKE 3 CAPSULES AT 5AM, TAKE 2 CAPSULES AT 9AM,1PM AND 5PM
     Route: 048
     Dates: start: 20250113
  4. CARBIDOPA\LEVODOPA [Suspect]
     Active Substance: CARBIDOPA\LEVODOPA
     Dosage: (36.25-145 MG) TAKE 3 CAPSULES FOR THE FIRST DOSE, 2 CAPSULES FOR THE SECOND DOSE, 3 CAPSULES FOR TH
     Route: 048
     Dates: start: 20250407
  5. CARBIDOPA\LEVODOPA [Suspect]
     Active Substance: CARBIDOPA\LEVODOPA
     Dosage: (36.25-145 MG) TAKE 3 CAPSULES AT 5AM, 1 PM AND 5 PM, TAKE 2 CAPSULES AT 9AM
     Route: 048
     Dates: start: 20250802
  6. CARBIDOPA\LEVODOPA [Suspect]
     Active Substance: CARBIDOPA\LEVODOPA
     Dosage: (36.25-145 MG) TAKE 3 CAPSULES BY MOUTH AT 6AM, 10AM, 2PM, AND 6PM. TAKE 1 CAPSULE BY MOUTH AT 9PM
     Route: 048

REACTIONS (4)
  - Hospitalisation [Unknown]
  - Memory impairment [Unknown]
  - Confusional state [Unknown]
  - Treatment noncompliance [Unknown]

NARRATIVE: CASE EVENT DATE: 20251001
